FAERS Safety Report 18419087 (Version 4)
Quarter: 2021Q1

REPORT INFORMATION
  Report Type: Report from Study
  Country: US (occurrence: US)
  Receive Date: 20201023
  Receipt Date: 20210305
  Transmission Date: 20210419
  Serious: No
  Sender: FDA-Public Use
  Company Number: NVSC2020US278948

PATIENT
  Sex: Female

DRUGS (2)
  1. COSENTYX [Suspect]
     Active Substance: SECUKINUMAB
     Indication: PSORIASIS
     Dosage: UNK
     Route: 065
  2. COSENTYX [Suspect]
     Active Substance: SECUKINUMAB
     Indication: PSORIASIS
     Dosage: 300 MG, QW (ONCE WEEKLY FOR 5 WEEKS,THEN ONCE EVERY 4 WEEKS)
     Route: 058
     Dates: start: 20201007

REACTIONS (7)
  - Injection site pain [Unknown]
  - Erythema [Unknown]
  - Tension headache [Unknown]
  - Manufacturing product shipping issue [Unknown]
  - Psoriasis [Unknown]
  - Pruritus [Unknown]
  - Injection site reaction [Unknown]
